FAERS Safety Report 5475090-8 (Version None)
Quarter: 2007Q4

REPORT INFORMATION
  Report Type: 
  Country: None (occurrence: None)
  Receive Date: 20071002
  Receipt Date: 20070921
  Transmission Date: 20080405
  Serious: Yes (Hospitalization)
  Sender: FDA-Public Use
  Company Number: FR-BOEHRINGER INGELHEIM PHARMACEUTICALS, INC.-2007-FF-00574FF

PATIENT
  Age: 75 Year
  Sex: Male

DRUGS (1)
  1. SIFROL [Suspect]
     Route: 048
     Dates: start: 20061015, end: 20070313

REACTIONS (2)
  - DISINHIBITION [None]
  - PERSONALITY CHANGE [None]
